FAERS Safety Report 12886171 (Version 1)
Quarter: 2016Q4

REPORT INFORMATION
  Report Type: Report from Study
  Country: AE (occurrence: AE)
  Receive Date: 20161026
  Receipt Date: 20161026
  Transmission Date: 20170207
  Serious: Yes (Hospitalization)
  Sender: FDA-Public Use
  Company Number: AE-PFIZER INC-2016490914

PATIENT
  Age: 28 Year
  Sex: Male
  Weight: 98 kg

DRUGS (2)
  1. VANCOMYCIN HCL [Suspect]
     Active Substance: VANCOMYCIN HYDROCHLORIDE
     Dosage: 1000 MG, 2X/DAY
     Route: 042
     Dates: start: 20141122, end: 20141124
  2. VANCOMYCIN HCL [Suspect]
     Active Substance: VANCOMYCIN HYDROCHLORIDE
     Dosage: 700 MG, 2X/DAY
     Route: 042
     Dates: start: 20141124, end: 20141128

REACTIONS (2)
  - Vomiting [Recovered/Resolved]
  - Muscular weakness [Recovered/Resolved]

NARRATIVE: CASE EVENT DATE: 20141124
